FAERS Safety Report 15846524 (Version 1)
Quarter: 2019Q1

REPORT INFORMATION
  Report Type: Spontaneous
  Country: FR (occurrence: FR)
  Receive Date: 20190120
  Receipt Date: 20190120
  Transmission Date: 20190417
  Serious: Yes (Other)
  Sender: FDA-Public Use
  Company Number: FR-BEH-2019098520

PATIENT
  Age: 4 Year
  Sex: Female
  Weight: 21.3 kg

DRUGS (1)
  1. PRIVIGEN [Suspect]
     Active Substance: HUMAN IMMUNOGLOBULIN G
     Indication: FEBRILE BONE MARROW APLASIA
     Dosage: UNK
     Route: 041
     Dates: start: 20181210, end: 20181210

REACTIONS (3)
  - Cyanosis [Recovered/Resolved]
  - Chills [Recovered/Resolved]
  - Livedo reticularis [Recovered/Resolved]

NARRATIVE: CASE EVENT DATE: 20181210
